FAERS Safety Report 11089694 (Version 1)
Quarter: 2015Q2

REPORT INFORMATION
  Report Type: Spontaneous
  Country: EG (occurrence: EG)
  Receive Date: 20150505
  Receipt Date: 20150505
  Transmission Date: 20150821
  Serious: Yes (Other)
  Sender: FDA-Public Use
  Company Number: EG-JNJFOC-20150418813

PATIENT
  Sex: Female

DRUGS (3)
  1. 5-FLUOROURACIL [Suspect]
     Active Substance: FLUOROURACIL
     Indication: BREAST CANCER
     Route: 065
  2. DOXORUBICIN HYDROCHLORIDE. [Suspect]
     Active Substance: DOXORUBICIN HYDROCHLORIDE
     Indication: BREAST CANCER
     Route: 042
  3. CYCLOPHOSPHAMIDE. [Suspect]
     Active Substance: CYCLOPHOSPHAMIDE
     Indication: BREAST CANCER
     Route: 065

REACTIONS (13)
  - Febrile neutropenia [Unknown]
  - Nausea [Unknown]
  - Swelling [Unknown]
  - Lymphoedema [Unknown]
  - Thrombocytopenia [Unknown]
  - Neutropenia [Unknown]
  - Vomiting [Unknown]
  - Mucosal inflammation [Unknown]
  - Discomfort [Unknown]
  - Anaemia [Unknown]
  - Dermatitis [Unknown]
  - Leukopenia [Unknown]
  - Abdominal discomfort [Unknown]
